FAERS Safety Report 17065162 (Version 1)
Quarter: 2019Q4

REPORT INFORMATION
  Report Type: Spontaneous
  Country: US (occurrence: US)
  Receive Date: 20191122
  Receipt Date: 20191122
  Transmission Date: 20200122
  Serious: No
  Sender: FDA-Public Use
  Company Number: US-SA-2019SA323171

PATIENT
  Sex: Female

DRUGS (8)
  1. CHLORTHALIDON [Concomitant]
     Active Substance: CHLORTHALIDONE
  2. DICLOFENAC [Concomitant]
     Active Substance: DICLOFENAC
  3. DUPIXENT [Suspect]
     Active Substance: DUPILUMAB
     Indication: DERMATITIS ATOPIC
     Dosage: 300 MG, QOW
     Route: 058
     Dates: start: 20190423
  4. LOSARTAN POTASSSIUM [Concomitant]
  5. ESTRADIOL. [Concomitant]
     Active Substance: ESTRADIOL
  6. RANITIDINE. [Concomitant]
     Active Substance: RANITIDINE
  7. BACLOFEN. [Concomitant]
     Active Substance: BACLOFEN
  8. GABAPENTIN. [Concomitant]
     Active Substance: GABAPENTIN

REACTIONS (2)
  - Dermatitis atopic [Not Recovered/Not Resolved]
  - Pruritus [Not Recovered/Not Resolved]
